FAERS Safety Report 24618547 (Version 1)
Quarter: 2024Q4

REPORT INFORMATION
  Report Type: Spontaneous
  Country: FR (occurrence: FR)
  Receive Date: 20241114
  Receipt Date: 20241114
  Transmission Date: 20250115
  Serious: Yes (Other)
  Sender: JOHNSON AND JOHNSON
  Company Number: FR-JNJFOC-20241126160

PATIENT
  Age: 56 Year
  Sex: Male

DRUGS (2)
  1. INVOKANA [Suspect]
     Active Substance: CANAGLIFLOZIN
     Indication: Diabetes mellitus
     Route: 048
     Dates: start: 20241012
  2. COVERAM [Concomitant]
     Active Substance: AMLODIPINE\PERINDOPRIL
     Indication: Hypertension
     Route: 048
     Dates: start: 2022

REACTIONS (4)
  - Hypotension [Unknown]
  - Pruritus [Unknown]
  - Rash [Unknown]
  - Malaise [Unknown]

NARRATIVE: CASE EVENT DATE: 20241012
